FAERS Safety Report 11675238 (Version 4)
Quarter: 2016Q1

REPORT INFORMATION
  Report Type: Report from Study
  Country: US (occurrence: US)
  Receive Date: 20151028
  Receipt Date: 20160113
  Transmission Date: 20160525
  Serious: Yes (Hospitalization, Other)
  Sender: FDA-Public Use
  Company Number: US-GILEAD-2015-0179321

PATIENT
  Age: 68 Year
  Sex: Female

DRUGS (2)
  1. AMBRISENTAN [Suspect]
     Active Substance: AMBRISENTAN
     Indication: PULMONARY ARTERIAL HYPERTENSION
     Dosage: 10 MG, QD
     Route: 065
     Dates: start: 20140616
  2. WARFARIN [Concomitant]
     Active Substance: WARFARIN

REACTIONS (7)
  - Gallbladder operation [Unknown]
  - Weight decreased [Unknown]
  - Malaise [Unknown]
  - Dyspepsia [Unknown]
  - Umbilical hernia [Unknown]
  - Obesity [Unknown]
  - Dehydration [Unknown]
